FAERS Safety Report 24667169 (Version 1)
Quarter: 2024Q4

REPORT INFORMATION
  Report Type: Spontaneous
  Country: SE (occurrence: SE)
  Receive Date: 20241126
  Receipt Date: 20241126
  Transmission Date: 20250115
  Serious: Yes (Other)
  Sender: TEVA
  Company Number: None

PATIENT
  Age: 28 Year
  Sex: Female

DRUGS (13)
  1. FLUOXETINE [Suspect]
     Active Substance: FLUOXETINE HYDROCHLORIDE
     Indication: Depression
     Dosage: 20 MG IN THE MORNING AND 20 MG AT LUNCH.
     Route: 065
  2. MOMETASONE FUROATE [Concomitant]
     Active Substance: MOMETASONE FUROATE
     Indication: Product used for unknown indication
     Dosage: ACCORDING TO SPECIAL PRESCRIPTION (VB): 8 YR SCHEDULE 1 APPLICATION DAILY FOR 2 YR. THEN EVERY OT...
     Route: 065
     Dates: start: 20240424
  3. DROSPIRENONE\ETHINYL ESTRADIOL [Concomitant]
     Active Substance: DROSPIRENONE\ETHINYL ESTRADIOL
     Indication: Product used for unknown indication
     Route: 065
     Dates: start: 20240817
  4. Miniderm Duo [Concomitant]
     Indication: Product used for unknown indication
     Dosage: 1 APPLICATION 2 TIMES DAILY
     Route: 065
     Dates: start: 20240424
  5. TREMFYA [Concomitant]
     Active Substance: GUSELKUMAB
     Indication: Product used for unknown indication
     Dosage: ACCORDING TO SPECIAL PRESCRIPTION 1 EVERY 8V
     Route: 058
     Dates: start: 20240424
  6. QUETIAPINE [Concomitant]
     Active Substance: QUETIAPINE
     Indication: Product used for unknown indication
     Dosage: TIME INTERVAL: AS NECESSARY: 1-2 TABLETS AS NEEDED, MAXIMUM 2 TABLETS PER DAY
     Route: 065
     Dates: start: 20230714
  7. BUSPIRONE HYDROCHLORIDE [Concomitant]
     Active Substance: BUSPIRONE HYDROCHLORIDE
     Indication: Product used for unknown indication
     Route: 065
     Dates: start: 20240702
  8. PROPIOMAZINE [Concomitant]
     Active Substance: PROPIOMAZINE
     Indication: Product used for unknown indication
     Dosage: 1-2 TABLETS AT NIGHT
     Route: 065
     Dates: start: 20230317
  9. ORUDIS [Concomitant]
     Active Substance: KETOPROFEN
     Indication: Product used for unknown indication
     Dosage: ORUDIS RETARD
     Route: 065
     Dates: start: 20240725
  10. BETAMETHASONE DIPROPIONATE [Concomitant]
     Active Substance: BETAMETHASONE DIPROPIONATE
     Indication: Product used for unknown indication
     Dosage: ACCORDING TO SPECIAL PRESCRIPTION, LUBRICATE THE SCALP 2 TIMES/D 2 WEEKS THEN 1 TIME/DAY 2 WEEKS ...
     Route: 065
     Dates: start: 20231106
  11. MELATONIN [Concomitant]
     Active Substance: MELATONIN
     Indication: Product used for unknown indication
     Dosage: 0.5 - 1 TABLET AT 19:00 AND 1 TABLET AT 21:00
     Route: 065
     Dates: start: 20240820
  12. PROPYLESS [Concomitant]
     Indication: Product used for unknown indication
     Dosage: 1 APPLICATION 2 TIMES DAILY
     Route: 065
     Dates: start: 20240531
  13. UREA [Concomitant]
     Active Substance: UREA
     Indication: Product used for unknown indication
     Dosage: 1 APPLICATION 2 TIMES DAILY
     Route: 065
     Dates: start: 20220224

REACTIONS (3)
  - Increased appetite [Unknown]
  - Fatigue [Recovered/Resolved]
  - Intermenstrual bleeding [Recovered/Resolved]

NARRATIVE: CASE EVENT DATE: 20241001
